FAERS Safety Report 18742060 (Version 1)
Quarter: 2021Q1

REPORT INFORMATION
  Report Type: Spontaneous
  Country: US (occurrence: US)
  Receive Date: 20210114
  Receipt Date: 20210114
  Transmission Date: 20210419
  Serious: No
  Sender: FDA-Public Use
  Company Number: US-ABBVIE-20K-163-3432623-00

PATIENT
  Sex: Male

DRUGS (1)
  1. DUOPA [Suspect]
     Active Substance: CARBIDOPA\LEVODOPA
     Indication: PARKINSON^S DISEASE
     Route: 050
     Dates: end: 2020

REACTIONS (6)
  - Discomfort [Unknown]
  - Feeling hot [Unknown]
  - Medical device site warmth [Unknown]
  - Wrong technique in device usage process [Unknown]
  - Device dislocation [Not Recovered/Not Resolved]
  - Device breakage [Unknown]
